FAERS Safety Report 4400516-8 (Version None)
Quarter: 2004Q3

REPORT INFORMATION
  Report Type: 
  Country: None (occurrence: None)
  Receive Date: 20040716
  Receipt Date: 20040716
  Transmission Date: 20050211
  Serious: Yes (Hospitalization)
  Sender: FDA-Public Use
  Company Number: None

PATIENT
  Age: 76 Year
  Sex: Male
  Weight: 39.6897 kg

DRUGS (2)
  1. WARFARIN SODIUM [Suspect]
     Indication: DEEP VEIN THROMBOSIS
     Dosage: WARFARIN QD ORAL
     Route: 048
     Dates: start: 19960101, end: 20040715
  2. SULINDAC [Suspect]
     Indication: DEEP VEIN THROMBOSIS
     Dosage: SULINDAC BID ORAL
     Route: 048
     Dates: start: 20021201, end: 20040715

REACTIONS (2)
  - DEEP VEIN THROMBOSIS [None]
  - LOWER GASTROINTESTINAL HAEMORRHAGE [None]
